FAERS Safety Report 12342481 (Version 1)
Quarter: 2016Q2

REPORT INFORMATION
  Report Type: Not Available
  Country: FR (occurrence: FR)
  Receive Date: 20160506
  Receipt Date: 20160506
  Transmission Date: 20160815
  Serious: Yes (Hospitalization)
  Sender: FDA-Public Use
  Company Number: FR-MIDATECHPHARMA-2016-US-002773

PATIENT
  Age: 84 Year
  Sex: Male

DRUGS (16)
  1. METFORMIN [Concomitant]
     Active Substance: METFORMIN HYDROCHLORIDE
     Route: 065
     Dates: end: 20160209
  2. LORAMYC [Suspect]
     Active Substance: MICONAZOLE
     Dosage: 1 TABLET DAILY
     Route: 048
     Dates: start: 20160209, end: 20160223
  3. CEFOTAXIME SODIUM [Concomitant]
     Active Substance: CEFOTAXIME SODIUM
     Route: 042
     Dates: start: 20160208, end: 20160218
  4. ACETYLSALICYLIC ACID [Concomitant]
     Active Substance: ASPIRIN
     Route: 048
  5. EZETIMIBE. [Concomitant]
     Active Substance: EZETIMIBE
     Route: 065
     Dates: end: 20160209
  6. ACETAMINOPHEN. [Concomitant]
     Active Substance: ACETAMINOPHEN
     Route: 042
     Dates: start: 20160209, end: 20160215
  7. TIOTROPIUM BROMIDE [Concomitant]
     Active Substance: TIOTROPIUM BROMIDE
     Route: 065
     Dates: end: 20160212
  8. ROSUVASTATIN CALCIUM. [Concomitant]
     Active Substance: ROSUVASTATIN CALCIUM
     Route: 065
     Dates: end: 20160209
  9. INDACATEROL [Concomitant]
     Active Substance: INDACATEROL
     Route: 065
     Dates: end: 20160209
  10. LERCANIDIPINE HYDROCHLORIDE [Suspect]
     Active Substance: LERCANIDIPINE HYDROCHLORIDE
     Dosage: 1 IN 1 DAY
     Route: 048
     Dates: end: 20160216
  11. ENOXAPARIN [Concomitant]
     Active Substance: ENOXAPARIN
     Route: 058
     Dates: start: 20160208, end: 20160223
  12. LATANOPROST. [Concomitant]
     Active Substance: LATANOPROST
  13. LEXOMIL [Concomitant]
     Active Substance: BROMAZEPAM
     Route: 065
     Dates: end: 20160209
  14. IVABRADINE [Suspect]
     Active Substance: IVABRADINE
     Dosage: 10-15 MG DAILY
     Route: 048
     Dates: end: 20160216
  15. METRONIDAZOLE. [Concomitant]
     Active Substance: METRONIDAZOLE
     Route: 042
     Dates: start: 20160208, end: 20160216
  16. POLYETHYLENE GLYCOL [Concomitant]
     Active Substance: POLYETHYLENE GLYCOLS
     Route: 048

REACTIONS (2)
  - Bradycardia [Recovered/Resolved]
  - Atrioventricular block [Recovered/Resolved]

NARRATIVE: CASE EVENT DATE: 20160215
